FAERS Safety Report 5777713-2 (Version None)
Quarter: 2008Q2

REPORT INFORMATION
  Report Type: 
  Country: None (occurrence: None)
  Receive Date: 20080618
  Receipt Date: 20070615
  Transmission Date: 20081010
  Serious: Yes (Death)
  Sender: FDA-Public Use
  Company Number: BR-BOEHRINGER INGELHEIM GMBH, GERMANY-2008-BP-09429BR

PATIENT

DRUGS (2)
  1. SPIRIVA [Suspect]
     Dates: start: 20050101
  2. ANTIHYPERTENSIVES (NON-SPECIFIED SUBSTANCE) [Concomitant]
     Indication: HYPERTENSION

REACTIONS (1)
  - CARDIAC DISORDER [None]
